FAERS Safety Report 25098935 (Version 1)
Quarter: 2025Q1

REPORT INFORMATION
  Report Type: Spontaneous
  Country: US (occurrence: US)
  Receive Date: 20250320
  Receipt Date: 20250320
  Transmission Date: 20250408
  Serious: Yes (Hospitalization, Other)
  Sender: SANOFI AVENTIS
  Company Number: US-SA-2025SA080906

PATIENT
  Age: 79 Year
  Sex: Male

DRUGS (1)
  1. DUPIXENT [Suspect]
     Active Substance: DUPILUMAB
     Dosage: UNK UNK, QOW
     Route: 058
     Dates: start: 2023, end: 202502

REACTIONS (3)
  - Pericardial effusion [Recovering/Resolving]
  - Road traffic accident [Recovering/Resolving]
  - Tissue injury [Recovering/Resolving]

NARRATIVE: CASE EVENT DATE: 20250101
